FAERS Safety Report 7341071-2 (Version None)
Quarter: 2011Q1

REPORT INFORMATION
  Report Type: 
  Country: None (occurrence: None)
  Receive Date: 20110309
  Receipt Date: 20110225
  Transmission Date: 20110831
  Serious: Yes (Other)
  Sender: FDA-Public Use
  Company Number: PHHY2011GB15448

PATIENT
  Age: 77 Year
  Sex: Female
  Weight: 71 kg

DRUGS (11)
  1. BUDESONIDE [Concomitant]
     Dates: start: 20101118
  2. METFORMIN [Suspect]
     Dates: start: 20110215
  3. BENDROFLUMETHIAZIDE [Concomitant]
     Dates: start: 20101118
  4. SALMETEROL [Concomitant]
     Dates: start: 20110215
  5. CLOMIPRAMINE HCL [Concomitant]
     Dates: start: 20101118
  6. FENOFIBRATE [Concomitant]
     Dates: start: 20101118
  7. ISPAGHULA HUSK [Concomitant]
     Dates: start: 20101118
  8. GLICLAZIDE [Concomitant]
     Dates: start: 20101028, end: 20101127
  9. MICONAZOLE [Concomitant]
     Dates: start: 20110215
  10. SALBUTAMOL [Concomitant]
     Dates: start: 20110127
  11. DICLOFENAC SODIUM [Concomitant]
     Dates: start: 20101118

REACTIONS (1)
  - LIVER FUNCTION TEST ABNORMAL [None]
